FAERS Safety Report 4441141-2 (Version None)
Quarter: 2004Q3

REPORT INFORMATION
  Report Type: 
  Country: None (occurrence: None)
  Receive Date: 20040728
  Receipt Date: 20040518
  Transmission Date: 20050211
  Serious: No
  Sender: FDA-Public Use
  Company Number: USA040567887

PATIENT
  Sex: Female

DRUGS (1)
  1. STRATTERA [Suspect]
     Dosage: 60 MG/2 DAY
     Dates: start: 20040504

REACTIONS (2)
  - DYSPEPSIA [None]
  - PRESCRIBED OVERDOSE [None]
